FAERS Safety Report 8334121-8 (Version None)
Quarter: 2012Q2

REPORT INFORMATION
  Report Type: 
  Country: None (occurrence: None)
  Receive Date: 20120503
  Receipt Date: 20120502
  Transmission Date: 20120825
  Serious: Yes (Other)
  Sender: FDA-Public Use
  Company Number: JP-PFIZER INC-2003006606

PATIENT
  Age: 19 Month
  Sex: Male

DRUGS (4)
  1. DIGOXIN [Interacting]
     Indication: ILL-DEFINED DISORDER
     Dosage: BID
     Route: 048
  2. ZITHROMAX [Suspect]
     Indication: ILL-DEFINED DISORDER
     Route: 065
  3. POTASSIUM CHLORIDE [Concomitant]
     Route: 048
  4. FUROSEMIDE [Concomitant]
     Route: 048

REACTIONS (6)
  - ATRIOVENTRICULAR BLOCK SECOND DEGREE [None]
  - BLOOD POTASSIUM INCREASED [None]
  - CARDIOACTIVE DRUG LEVEL INCREASED [None]
  - DECREASED APPETITE [None]
  - DRUG INTERACTION [None]
  - DIARRHOEA [None]
